FAERS Safety Report 23790267 (Version 1)
Quarter: 2024Q2

REPORT INFORMATION
  Report Type: Spontaneous
  Country: CA (occurrence: None)
  Receive Date: 20240426
  Receipt Date: 20240426
  Transmission Date: 20240716
  Serious: Yes (Hospitalization)
  Sender: FDA-Public Use
  Company Number: CA-ROCHE-3550248

PATIENT
  Age: 81 Year
  Sex: Male

DRUGS (6)
  1. RITUXAN [Suspect]
     Active Substance: RITUXIMAB
     Indication: Chronic lymphocytic leukaemia
     Dosage: DOSE: 120 MG/ML
     Route: 058
  2. ACETAMINOPHEN [Concomitant]
     Active Substance: ACETAMINOPHEN
  3. DIPHENHYDRAMINE [Concomitant]
     Active Substance: DIPHENHYDRAMINE
  4. ESCITALOPRAM [Concomitant]
     Active Substance: ESCITALOPRAM OXALATE
  5. TAMSULOSIN [Concomitant]
     Active Substance: TAMSULOSIN
  6. VENETOCLAX [Concomitant]
     Active Substance: VENETOCLAX

REACTIONS (8)
  - Abdominal distension [Unknown]
  - Dry skin [Unknown]
  - Erythema [Unknown]
  - Feeling hot [Unknown]
  - Injection site erythema [Unknown]
  - Injection site pain [Unknown]
  - Skin exfoliation [Unknown]
  - Tenderness [Unknown]
